FAERS Safety Report 24728682 (Version 3)
Quarter: 2025Q3

REPORT INFORMATION
  Report Type: Report from Study
  Country: US (occurrence: US)
  Receive Date: 20241212
  Receipt Date: 20250802
  Transmission Date: 20251020
  Serious: Yes (Other)
  Sender: ALEXION PHARMACEUTICALS
  Company Number: US-AstraZeneca-CH-00765669A

PATIENT
  Age: 86 Year
  Sex: Male

DRUGS (9)
  1. DAPAGLIFLOZIN [Suspect]
     Active Substance: DAPAGLIFLOZIN
     Indication: Product used for unknown indication
     Dosage: 10 MILLIGRAM, QD
  2. ENTRESTO [Concomitant]
     Active Substance: SACUBITRIL\VALSARTAN
  3. CARVEDILOL [Concomitant]
     Active Substance: CARVEDILOL
  4. WARFARIN [Concomitant]
     Active Substance: WARFARIN
  5. DIGOXIN [Concomitant]
     Active Substance: DIGOXIN
  6. AMIODARONE [Concomitant]
     Active Substance: AMIODARONE
  7. ALDACTONE [Concomitant]
     Active Substance: SPIRONOLACTONE
  8. SYNTHROID [Concomitant]
     Active Substance: LEVOTHYROXINE SODIUM
  9. COENZYME Q10 [Concomitant]
     Active Substance: DIETARY SUPPLEMENT\UBIDECARENONE

REACTIONS (6)
  - Cardiac failure [Unknown]
  - Renal impairment [Unknown]
  - Atrial fibrillation [Unknown]
  - Hypothyroidism [Unknown]
  - Pulmonary fibrosis [Unknown]
  - Cardiomyopathy [Unknown]
